FAERS Safety Report 10646063 (Version 1)
Quarter: 2014Q4

REPORT INFORMATION
  Report Type: Spontaneous
  Country: US (occurrence: None)
  Receive Date: 20141205
  Receipt Date: 20141205
  Transmission Date: 20150529
  Serious: Yes (Other)
  Sender: FDA-Public Use
  Company Number: 1000060470

PATIENT
  Age: 72 Year
  Sex: Male
  Weight: 84 kg

DRUGS (5)
  1. CARBIDOPA/LEVODOPA(SINEMET)(SINEMET) [Concomitant]
  2. DIOVAN [Suspect]
     Active Substance: VALSARTAN
     Dates: end: 201402
  3. NAMENDA [Suspect]
     Active Substance: MEMANTINE HYDROCHLORIDE
     Indication: DEMENTIA
     Dosage: 20 MG (10 MG,2 IN 1 D)
  4. ARICEPT [Suspect]
     Active Substance: DONEPEZIL HYDROCHLORIDE
     Indication: DEMENTIA
     Dates: end: 20140128
  5. SEROQUEL [Concomitant]
     Active Substance: QUETIAPINE FUMARATE

REACTIONS (3)
  - Feeling jittery [None]
  - Bradycardia [None]
  - Restlessness [None]
